FAERS Safety Report 25273449 (Version 1)
Quarter: 2025Q2

REPORT INFORMATION
  Report Type: Spontaneous
  Country: CN (occurrence: CN)
  Receive Date: 20250506
  Receipt Date: 20250506
  Transmission Date: 20250716
  Serious: Yes (Hospitalization, Other)
  Sender: PFIZER
  Company Number: CN-PFIZER INC-PV202500023716

PATIENT
  Age: 22 Year
  Sex: Male

DRUGS (1)
  1. XYNTHA [Suspect]
     Active Substance: MOROCTOCOG ALFA
     Indication: Haemophilia
     Dosage: 2000 IU, 2X/DAY (BID)
     Route: 042
     Dates: start: 20250226

REACTIONS (6)
  - Arthralgia [Unknown]
  - Joint swelling [Recovering/Resolving]
  - Haematoma [Recovering/Resolving]
  - Synovitis [Recovering/Resolving]
  - Chondropathy [Recovering/Resolving]
  - Arthralgia [Recovering/Resolving]
